FAERS Safety Report 4770845-7 (Version None)
Quarter: 2005Q3

REPORT INFORMATION
  Report Type: 
  Country: None (occurrence: None)
  Receive Date: 20050915
  Receipt Date: 20050908
  Transmission Date: 20060218
  Serious: Yes (Other)
  Sender: FDA-Public Use
  Company Number: CH-GLAXOSMITHKLINE-B0393687A

PATIENT
  Age: 70 Year
  Sex: Male

DRUGS (2)
  1. AVANDIA [Suspect]
     Indication: DIABETES MELLITUS
     Dosage: 4MG PER DAY
     Route: 048
     Dates: start: 20041203, end: 20050627
  2. MADOPAR [Suspect]
     Indication: RESTLESS LEGS SYNDROME
     Dosage: 125MG PER DAY
     Route: 048
     Dates: start: 20050202, end: 20050627

REACTIONS (3)
  - BLOOD ALKALINE PHOSPHATASE INCREASED [None]
  - FLATULENCE [None]
  - PROTHROMBIN LEVEL DECREASED [None]
